FAERS Safety Report 15030153 (Version 1)
Quarter: 2018Q2

REPORT INFORMATION
  Report Type: Spontaneous
  Country: GR (occurrence: GR)
  Receive Date: 20180619
  Receipt Date: 20180619
  Transmission Date: 20180711
  Serious: Yes (Other)
  Sender: FDA-Public Use
  Company Number: GR-SHIRE-GR201821762

PATIENT

DRUGS (4)
  1. ONCASPAR [Suspect]
     Active Substance: PEGASPARGASE
     Indication: ACUTE LYMPHOCYTIC LEUKAEMIA
     Dosage: 1500 IU, UNK
     Route: 042
     Dates: start: 20140304, end: 20140304
  2. ONCASPAR [Suspect]
     Active Substance: PEGASPARGASE
     Dosage: 1500 IU, UNK
     Route: 065
     Dates: start: 20140306, end: 20140306
  3. ASPARAGINASE [Concomitant]
     Active Substance: ASPARAGINASE
     Indication: ACUTE LYMPHOCYTIC LEUKAEMIA
  4. ERWINASE [Concomitant]
     Active Substance: ASPARAGINASE ERWINIA CHRYSANTHEMI
     Indication: ACUTE LYMPHOCYTIC LEUKAEMIA

REACTIONS (5)
  - Pruritus [Recovered/Resolved]
  - Pruritus [Recovered/Resolved]
  - Lip oedema [Recovered/Resolved]
  - Rash macular [Recovered/Resolved]
  - Rash macular [Recovered/Resolved]

NARRATIVE: CASE EVENT DATE: 20140304
